FAERS Safety Report 23652967 (Version 3)
Quarter: 2024Q2

REPORT INFORMATION
  Report Type: Spontaneous
  Country: US (occurrence: US)
  Receive Date: 20240320
  Receipt Date: 20240430
  Transmission Date: 20240715
  Serious: No
  Sender: FDA-Public Use
  Company Number: US-PFIZER INC-202400056822

PATIENT
  Age: 11 Year
  Sex: Female
  Weight: 24.49 kg

DRUGS (7)
  1. GENOTROPIN [Suspect]
     Active Substance: SOMATROPIN
     Indication: Growth hormone deficiency
     Dosage: 0.8 MG, DAILY
     Dates: start: 2021
  2. GENOTROPIN [Suspect]
     Active Substance: SOMATROPIN
     Dosage: UNK
  3. ALBUTEROL SULFATE [Concomitant]
     Active Substance: ALBUTEROL SULFATE
     Indication: Lung disorder
     Dosage: 2 DF, 2X/DAY(2 PUFFS IN THE MORNING AND AFTERNOON)
     Dates: start: 2012
  4. FLOVENT [Concomitant]
     Active Substance: FLUTICASONE PROPIONATE
     Indication: Lung disorder
     Dosage: 2 DF, 2X/DAY (2 PUFFS IN THE MORNING AND AFTERNOON)
     Dates: start: 2012
  5. FLOVENT [Concomitant]
     Active Substance: FLUTICASONE PROPIONATE
     Indication: Asthma
  6. OMEPRAZOLE [Concomitant]
     Active Substance: OMEPRAZOLE
     Indication: Gastrooesophageal reflux disease
     Dosage: 5 ML, 2X/DAY
  7. ALBUTEROL [Concomitant]
     Active Substance: ALBUTEROL
     Indication: Asthma
     Dosage: 2 PUFFS IN THE MORNING AND AFTERNOON

REACTIONS (6)
  - Drug dose omission by device [Unknown]
  - Wrong technique in device usage process [Unknown]
  - Device use issue [Unknown]
  - Needle issue [Unknown]
  - Device breakage [Unknown]
  - Device leakage [Unknown]
